FAERS Safety Report 7877638-2 (Version None)
Quarter: 2011Q4

REPORT INFORMATION
  Report Type: 
  Country: None (occurrence: None)
  Receive Date: 20111031
  Receipt Date: 20111027
  Transmission Date: 20120403
  Serious: Yes (Life-Threatening, Hospitalization)
  Sender: FDA-Public Use
  Company Number: JP-B.I. PHARMACEUTICALS,INC./RIDGEFIELD-2011-BP-14475NB

PATIENT
  Sex: Female

DRUGS (6)
  1. LASIX [Concomitant]
     Indication: CARDIAC FAILURE
     Dosage: 20 MG
     Route: 065
     Dates: start: 20110407
  2. FAMOTIDINE [Concomitant]
     Indication: HAEMORRHAGE PROPHYLAXIS
     Dosage: 20 MG
     Route: 065
     Dates: start: 20110407
  3. OLMESARTAN MEDOXOMIL [Concomitant]
     Indication: HYPERTENSION
     Dosage: 20 MG
     Route: 065
     Dates: start: 20110516
  4. OLMESARTAN MEDOXOMIL [Concomitant]
     Dosage: 20 MG
     Route: 065
  5. PRADAXA [Suspect]
     Indication: ATRIAL FIBRILLATION
     Dosage: 220 MG
     Route: 048
     Dates: start: 20110407, end: 20110530
  6. VERAPAMIL HCL [Concomitant]
     Indication: TACHYCARDIA
     Dosage: 120 MG
     Route: 065
     Dates: start: 20110407

REACTIONS (8)
  - ANAEMIA [None]
  - HAEMORRHOIDS [None]
  - MELAENA [None]
  - HAEMORRHOIDAL HAEMORRHAGE [None]
  - PLATELET COUNT DECREASED [None]
  - GASTRIC HAEMORRHAGE [None]
  - GASTRIC ULCER [None]
  - ACTIVATED PARTIAL THROMBOPLASTIN TIME PROLONGED [None]
